FAERS Safety Report 15118168 (Version 2)
Quarter: 2018Q3

REPORT INFORMATION
  Report Type: Spontaneous
  Country: JP (occurrence: JP)
  Receive Date: 20180707
  Receipt Date: 20180829
  Transmission Date: 20181010
  Serious: Yes (Death, Other)
  Sender: FDA-Public Use
  Company Number: JP-NOVOPROD-608377

PATIENT
  Age: 74 Year
  Sex: Female
  Weight: 66.3 kg

DRUGS (11)
  1. LANTUS [Suspect]
     Active Substance: INSULIN GLARGINE
     Indication: TYPE 1 DIABETES MELLITUS
     Dosage: 13 IU, QD
     Route: 058
     Dates: start: 20120514, end: 20170918
  2. REBAMIPIDE [Concomitant]
     Active Substance: REBAMIPIDE
     Indication: CHRONIC GASTRITIS
     Dosage: 100 MG, TID
     Route: 048
     Dates: start: 20090331
  3. FAMOTIDINE. [Concomitant]
     Active Substance: FAMOTIDINE
     Indication: CHRONIC GASTRITIS
     Dosage: 20 MG, QD
     Route: 048
     Dates: start: 20080218
  4. MYORELARK [Concomitant]
     Active Substance: EPERISONE HYDROCHLORIDE
     Indication: MYALGIA
     Dosage: 50 MG, TID
     Route: 048
     Dates: start: 20161115
  5. LIMAPROST ALFADEX [Concomitant]
     Active Substance: LIMAPROST
     Indication: DIABETIC FOOT
     Dosage: 10 ?G, TID
     Route: 048
     Dates: start: 20080218
  6. LANTUS [Suspect]
     Active Substance: INSULIN GLARGINE
     Dosage: 10 IU/DAY
     Route: 058
     Dates: start: 20170919, end: 20180625
  7. NOVORAPID [Suspect]
     Active Substance: INSULIN ASPART
     Dosage: (3?4?5IU/DAY) TO (5?4?4IU/DAY)
     Route: 058
     Dates: start: 20120904, end: 20180625
  8. MOSAPRIDE CITRATE [Concomitant]
     Active Substance: MOSAPRIDE CITRATE
     Indication: DIABETIC NEUROPATHY
     Dosage: 5 MG, TID
     Route: 048
     Dates: start: 20180218
  9. MECOBALAMIN [Concomitant]
     Active Substance: METHYLCOBALAMIN
     Indication: DIABETIC NEUROPATHY
     Dosage: 0.50 MG, TID
     Route: 048
     Dates: start: 20150610
  10. GRANDAXIN [Concomitant]
     Active Substance: TOFISOPAM
     Indication: DIABETIC NEUROPATHY
     Dosage: 50 MG, TID
     Route: 048
     Dates: start: 20170110
  11. NOVORAPID [Suspect]
     Active Substance: INSULIN ASPART
     Indication: TYPE 1 DIABETES MELLITUS
     Dosage: 4 IU, TID (4?4?4IU/DAY)
     Route: 058
     Dates: start: 20110307

REACTIONS (4)
  - Hypoglycaemia [Recovered/Resolved]
  - Hypoglycaemia [Recovered/Resolved]
  - Hypoglycaemia [Recovered/Resolved]
  - Hypoglycaemia [Fatal]

NARRATIVE: CASE EVENT DATE: 201703
